FAERS Safety Report 4525303-1 (Version None)
Quarter: 2004Q4

REPORT INFORMATION
  Report Type: 
  Country: None (occurrence: None)
  Receive Date: 20041213
  Receipt Date: 20041206
  Transmission Date: 20050328
  Serious: Yes (Hospitalization)
  Sender: FDA-Public Use
  Company Number: FR-ROCHE-388368

PATIENT
  Age: 59 Year
  Sex: Male

DRUGS (6)
  1. RIVOTRIL [Suspect]
     Indication: DRUG USE FOR UNKNOWN INDICATION
     Route: 048
     Dates: start: 20040327, end: 20040803
  2. TIAPRIDE [Suspect]
     Indication: DRUG USE FOR UNKNOWN INDICATION
     Route: 048
     Dates: start: 20040327, end: 20040802
  3. TIAPRIDE [Suspect]
     Dosage: RECHALLENGE.
     Route: 048
  4. THERALENE [Suspect]
     Indication: DRUG USE FOR UNKNOWN INDICATION
     Route: 048
     Dates: start: 20040327, end: 20040803
  5. DEPAKOTE [Suspect]
     Indication: DRUG USE FOR UNKNOWN INDICATION
     Route: 048
     Dates: start: 20040330, end: 20040804
  6. LARGACTIL [Concomitant]
     Dosage: DISCONTINUED ON 03 AUGUST 2004, REINTRODUCED ON 13 AUGUST 2004.
     Dates: start: 20040802, end: 20040817

REACTIONS (1)
  - NEUTROPENIA [None]
